FAERS Safety Report 7492541-8 (Version None)
Quarter: 2011Q2

REPORT INFORMATION
  Report Type: 
  Country: None (occurrence: None)
  Receive Date: 20110519
  Receipt Date: 20110504
  Transmission Date: 20111010
  Serious: Yes (Hospitalization)
  Sender: FDA-Public Use
  Company Number: TN-PFIZER INC-2011105483

PATIENT
  Age: 33 Year
  Sex: Female

DRUGS (4)
  1. HYDROXYZINE HCL [Suspect]
     Indication: PSORIASIS
     Route: 048
  2. BETAMETHASONE [Concomitant]
     Indication: PSORIASIS
  3. GLUCOCORTICOIDS [Concomitant]
     Indication: PSORIASIS
     Route: 061
  4. VASELINE [Concomitant]
     Indication: PSORIASIS

REACTIONS (1)
  - DERMATITIS EXFOLIATIVE [None]
